FAERS Safety Report 11230542 (Version 1)
Quarter: 2015Q3

REPORT INFORMATION
  Report Type: Spontaneous
  Country: GB (occurrence: GB)
  Receive Date: 20150701
  Receipt Date: 20150701
  Transmission Date: 20151125
  Serious: Yes (Hospitalization)
  Sender: FDA-Public Use
  Company Number: GB-TEVA-573664ACC

PATIENT
  Age: 85 Year
  Sex: Female

DRUGS (11)
  1. ASPIRIN. [Concomitant]
     Active Substance: ASPIRIN
  2. LACTULOSE SOLUTION [Concomitant]
  3. OLMESARTAN [Concomitant]
     Active Substance: OLMESARTAN
  4. SIMVASTATIN. [Concomitant]
     Active Substance: SIMVASTATIN
  5. BISOPROLOL [Concomitant]
     Active Substance: BISOPROLOL
  6. CARBOMER 980 [Concomitant]
     Active Substance: CARBOMER HOMOPOLYMER TYPE C (ALLYL PENTAERYTHRITOL CROSSLINKED)
  7. FOLIC ACID. [Concomitant]
     Active Substance: FOLIC ACID
  8. SALBUTAMOL [Concomitant]
     Active Substance: ALBUTEROL
  9. PARACETAMOL [Concomitant]
     Active Substance: ACETAMINOPHEN
  10. TRAMADOL. [Suspect]
     Active Substance: TRAMADOL
     Indication: RHEUMATOID ARTHRITIS
  11. ACIDEX [Concomitant]
     Active Substance: CALCIUM CARBONATE\SODIUM ALGINATE\SODIUM BICARBONATE

REACTIONS (3)
  - Fall [Recovered/Resolved]
  - Humerus fracture [Unknown]
  - Dizziness [Recovered/Resolved]

NARRATIVE: CASE EVENT DATE: 20150602
